FAERS Safety Report 8550269-7 (Version None)
Quarter: 2012Q3

REPORT INFORMATION
  Report Type: 
  Country: None (occurrence: None)
  Receive Date: 20120730
  Receipt Date: 20120724
  Transmission Date: 20120928
  Serious: Yes (Hospitalization, Disabling, Other)
  Sender: FDA-Public Use
  Company Number: PHEH2012US014189

PATIENT
  Sex: Female

DRUGS (1)
  1. GILENYA [Suspect]
     Indication: MULTIPLE SCLEROSIS
     Dosage: 0.5 MG, QD
     Route: 048
     Dates: start: 20120718

REACTIONS (3)
  - ELECTROCARDIOGRAM ABNORMAL [None]
  - HEART RATE DECREASED [None]
  - ELECTROCARDIOGRAM QT PROLONGED [None]
